FAERS Safety Report 16264781 (Version 2)
Quarter: 2019Q2

REPORT INFORMATION
  Report Type: Report from Study
  Country: TW (occurrence: TW)
  Receive Date: 20190502
  Receipt Date: 20190617
  Transmission Date: 20190711
  Serious: Yes (Hospitalization, Other)
  Sender: FDA-Public Use
  Company Number: TW-ACTELION-A-CH2016-130925

PATIENT
  Age: 69 Year
  Sex: Female

DRUGS (2)
  1. OPSUMIT [Suspect]
     Active Substance: MACITENTAN
     Indication: PULMONARY ARTERIAL HYPERTENSION
     Dosage: 10 MG, QD
     Route: 048
     Dates: start: 20140912
  2. REVATIO [Concomitant]
     Active Substance: SILDENAFIL CITRATE
     Indication: PULMONARY ARTERIAL HYPERTENSION
     Dosage: 20 MG, TID
     Route: 048

REACTIONS (6)
  - Colon cancer [Recovered/Resolved]
  - Abdominal discomfort [Recovered/Resolved]
  - Lung cancer metastatic [Unknown]
  - Abdominal pain [Recovered/Resolved]
  - Abnormal faeces [Recovered/Resolved]
  - Colectomy [Recovered/Resolved]

NARRATIVE: CASE EVENT DATE: 20160131
